FAERS Safety Report 13710524 (Version 1)
Quarter: 2017Q2

REPORT INFORMATION
  Report Type: Spontaneous
  Country: US (occurrence: US)
  Receive Date: 20170630
  Receipt Date: 20170630
  Transmission Date: 20170830
  Serious: Yes (Other)
  Sender: FDA-Public Use
  Company Number: None

PATIENT
  Age: 66 Year
  Sex: Male
  Weight: 60.75 kg

DRUGS (1)
  1. PIRFENIDONE [Suspect]
     Active Substance: PIRFENIDONE
     Indication: IDIOPATHIC PULMONARY FIBROSIS
     Dosage: ?          OTHER DOSE:MG;?
     Route: 048
     Dates: start: 20161220, end: 20170309

REACTIONS (3)
  - Drug intolerance [None]
  - General physical health deterioration [None]
  - Decreased appetite [None]

NARRATIVE: CASE EVENT DATE: 20170314
